FAERS Safety Report 5649029-6 (Version None)
Quarter: 2008Q1

REPORT INFORMATION
  Report Type: 
  Country: None (occurrence: None)
  Receive Date: 20080229
  Receipt Date: 20080213
  Transmission Date: 20080703
  Serious: Yes (Other)
  Sender: FDA-Public Use
  Company Number: 2008JP000827

PATIENT
  Age: 56 Year
  Sex: Female

DRUGS (4)
  1. PROGRAF [Suspect]
     Indication: RENAL TRANSPLANT
     Dosage: 0.15 MG/KG, BID, ORAL
     Route: 048
  2. 0.05 MG/KG [Suspect]
     Indication: RENAL TRANSPLANT
     Dosage: 0.15 MG/KG, CONTINUOUS, IV NOS
     Route: 042
  3. MYCOPHENOLATE MOFETIL [Concomitant]
  4. AZATHIOPRINE [Concomitant]

REACTIONS (8)
  - ASCITES [None]
  - BLOOD BILIRUBIN INCREASED [None]
  - BLOOD LACTATE DEHYDROGENASE INCREASED [None]
  - HAEMATOCRIT DECREASED [None]
  - HAEMODIALYSIS [None]
  - HAEMOGLOBIN DECREASED [None]
  - THROMBOTIC MICROANGIOPATHY [None]
  - TRANSPLANT REJECTION [None]
